FAERS Safety Report 4948888-X (Version None)
Quarter: 2006Q1

REPORT INFORMATION
  Report Type: 
  Country: None (occurrence: None)
  Receive Date: 20060316
  Receipt Date: 20060308
  Transmission Date: 20060701
  Serious: Yes (Other)
  Sender: FDA-Public Use
  Company Number: 2006034263

PATIENT
  Sex: Male

DRUGS (1)
  1. ZYRTEC [Suspect]
     Indication: ILL-DEFINED DISORDER

REACTIONS (4)
  - CARDIAC PACEMAKER INSERTION [None]
  - DISORIENTATION [None]
  - FEELING ABNORMAL [None]
  - SYNCOPE [None]
